FAERS Safety Report 25454802 (Version 1)
Quarter: 2025Q2

REPORT INFORMATION
  Report Type: Spontaneous
  Country: GR (occurrence: GR)
  Receive Date: 20250619
  Receipt Date: 20250619
  Transmission Date: 20250716
  Serious: Yes (Other)
  Sender: ACCORD
  Company Number: GR-EMA-DD-20250529-7483181-075003

PATIENT
  Sex: Female

DRUGS (1)
  1. METHOTREXATE [Suspect]
     Active Substance: METHOTREXATE
     Indication: Ectopic pregnancy

REACTIONS (2)
  - Ruptured ectopic pregnancy [Recovered/Resolved]
  - Maternal exposure during pregnancy [Unknown]
